FAERS Safety Report 24408509 (Version 1)
Quarter: 2024Q4

REPORT INFORMATION
  Report Type: Spontaneous
  Country: US (occurrence: US)
  Receive Date: 20241007
  Receipt Date: 20241007
  Transmission Date: 20250115
  Serious: No
  Sender: RECKITT BENCKISER
  Company Number: US-Indivior Limited-INDV-143793-2024

PATIENT

DRUGS (2)
  1. SUBLOCADE [Suspect]
     Active Substance: BUPRENORPHINE
     Indication: Product used for unknown indication
     Dosage: UNK, Q2WK
     Route: 065
  2. SUBLOCADE [Suspect]
     Active Substance: BUPRENORPHINE

REACTIONS (2)
  - Inappropriate schedule of product administration [Recovered/Resolved]
  - No adverse event [Unknown]
